FAERS Safety Report 6386417-7 (Version None)
Quarter: 2009Q4

REPORT INFORMATION
  Report Type: 
  Country: None (occurrence: None)
  Receive Date: 20091002
  Receipt Date: 20090928
  Transmission Date: 20100525
  Serious: Yes (Hospitalization)
  Sender: FDA-Public Use
  Company Number: B0595739A

PATIENT
  Age: 25 Year
  Sex: Male

DRUGS (1)
  1. ALLI [Suspect]
     Dosage: 3CAP PER DAY
     Route: 065
     Dates: start: 20090815, end: 20090907

REACTIONS (6)
  - ABDOMINAL PAIN [None]
  - DIARRHOEA HAEMORRHAGIC [None]
  - GASTROINTESTINAL INFECTION [None]
  - INTENTIONAL DRUG MISUSE [None]
  - PROCTITIS [None]
  - RECTAL HAEMORRHAGE [None]
